FAERS Safety Report 13946730 (Version 8)
Quarter: 2018Q4

REPORT INFORMATION
  Report Type: Report from Study
  Country: CA (occurrence: CA)
  Receive Date: 20170907
  Receipt Date: 20181002
  Transmission Date: 20190204
  Serious: Yes (Other)
  Sender: FDA-Public Use
  Company Number: PHHY2017CA109828

PATIENT
  Age: 82 Year
  Sex: Female

DRUGS (5)
  1. REVOLADE [Suspect]
     Active Substance: ELTROMBOPAG
     Dosage: 75 MG, QD
     Route: 048
     Dates: start: 20180713
  2. BISOPROLOL [Concomitant]
     Active Substance: BISOPROLOL
     Indication: PRODUCT USED FOR UNKNOWN INDICATION
     Dosage: 2.5 MG, QD
     Route: 065
  3. ATORVASTATIN [Concomitant]
     Active Substance: ATORVASTATIN
     Indication: PRODUCT USED FOR UNKNOWN INDICATION
     Dosage: 2.5 MG, QD
     Route: 065
  4. REVOLADE [Suspect]
     Active Substance: ELTROMBOPAG
     Dosage: 50 MG, QD
     Route: 048
     Dates: start: 20170713
  5. REVOLADE [Suspect]
     Active Substance: ELTROMBOPAG
     Indication: IMMUNE THROMBOCYTOPENIC PURPURA
     Dosage: 25 MG, UNK
     Route: 048

REACTIONS (18)
  - Pain in extremity [Unknown]
  - Platelet count increased [Recovered/Resolved]
  - Diarrhoea [Recovering/Resolving]
  - Weight decreased [Unknown]
  - Immune system disorder [Unknown]
  - Dizziness [Unknown]
  - Fatigue [Unknown]
  - Deep vein thrombosis [Unknown]
  - Dry eye [Unknown]
  - Malaise [Unknown]
  - Peripheral swelling [Unknown]
  - Platelet count decreased [Recovering/Resolving]
  - Blood iron decreased [Unknown]
  - Blood calcium decreased [Unknown]
  - Headache [Unknown]
  - Dry mouth [Unknown]
  - Infection susceptibility increased [Unknown]
  - Palpitations [Unknown]

NARRATIVE: CASE EVENT DATE: 20170726
